FAERS Safety Report 14528702 (Version 2)
Quarter: 2018Q1

REPORT INFORMATION
  Report Type: Report from Study
  Country: CN (occurrence: CN)
  Receive Date: 20180214
  Receipt Date: 20180321
  Transmission Date: 20180509
  Serious: Yes (Hospitalization)
  Sender: FDA-Public Use
  Company Number: CN-ROCHE-2067547

PATIENT
  Age: 60 Year
  Sex: Male

DRUGS (16)
  1. OBINUTUZUMAB. [Suspect]
     Active Substance: OBINUTUZUMAB
     Indication: DIFFUSE LARGE B-CELL LYMPHOMA
     Dosage: ON DAY 1 OF EACH 21-DAY CYCLE FOR 8 CYCLES. DURING CYCLE 1, OBINUTUZUMAB WAS ALSO INFUSED ON DAYS 8
     Route: 042
     Dates: start: 20130802
  2. XINHUANG PIAN [Concomitant]
     Indication: PYREXIA
     Route: 065
     Dates: start: 20130904, end: 20130904
  3. FLUCONAZOLE. [Concomitant]
     Active Substance: FLUCONAZOLE
     Route: 065
     Dates: start: 20130918, end: 20130922
  4. INDOMETACIN [Concomitant]
     Active Substance: INDOMETHACIN
     Indication: PYREXIA
     Route: 065
     Dates: start: 20130919, end: 20130921
  5. CYCLOPHOSPHAMIDE. [Suspect]
     Active Substance: CYCLOPHOSPHAMIDE
     Indication: DIFFUSE LARGE B-CELL LYMPHOMA
     Dosage: DATE OF MOST RECENT DOSE OF CYCLOPHOSPHAMIDE PRIOR TO SERIOUS ADVERSE EVENT (SAE): 24/AUG/2013, 1447
     Route: 042
     Dates: start: 20130803
  6. LANSOPRAZOLE. [Concomitant]
     Active Substance: LANSOPRAZOLE
     Route: 065
     Dates: start: 20130824, end: 20130824
  7. DOXORUBICIN [Suspect]
     Active Substance: DOXORUBICIN
     Indication: DIFFUSE LARGE B-CELL LYMPHOMA
     Dosage: ON  DAY 1 OF EACH 21-DAY CYCLE?DATE OF MOST RECENT DOSE OF DOXORUBICIN PRIOR TO SERIOUS ADVERSE EVEN
     Route: 042
     Dates: start: 20130803
  8. OMEPRAZOLE. [Concomitant]
     Active Substance: OMEPRAZOLE
     Route: 065
     Dates: start: 20130824, end: 20130828
  9. PROMETHAZINE HYDROCHLORIDE. [Concomitant]
     Active Substance: PROMETHAZINE HYDROCHLORIDE
     Indication: SEDATION
     Route: 065
     Dates: start: 20130823, end: 20130823
  10. FILGRASTIM [Concomitant]
     Active Substance: FILGRASTIM
     Indication: WHITE BLOOD CELL COUNT INCREASED
     Route: 065
     Dates: start: 20130825, end: 20130825
  11. VINCRISTINE [Suspect]
     Active Substance: VINCRISTINE
     Indication: DIFFUSE LARGE B-CELL LYMPHOMA
     Dosage: ON DAY 1 OF EACH 21-DAY CYCLE. DOSE AS PER PROTOCOL: 1.4 MG/M2 (MAXIMUM 2 MG)?DATE OF MOST RECENT DO
     Route: 040
     Dates: start: 20130803
  12. PREDNISONE. [Suspect]
     Active Substance: PREDNISONE
     Indication: DIFFUSE LARGE B-CELL LYMPHOMA
     Dosage: PREDNISONE 100 MG (OR EQUIVALENT PREDNISOLONE OR METHYLPREDNISOLONE), ADMINISTERED ORALLY ON DAYS 1-
     Route: 048
     Dates: start: 20130803
  13. LEVOFLOXACIN. [Concomitant]
     Active Substance: LEVOFLOXACIN
     Indication: PYREXIA
     Route: 065
     Dates: start: 20130916, end: 20130923
  14. PALONOSETRON HYDROCHLORIDE. [Concomitant]
     Active Substance: PALONOSETRON HYDROCHLORIDE
     Route: 065
     Dates: start: 20130824, end: 20130824
  15. CEFTAZIDIME. [Concomitant]
     Active Substance: CEFTAZIDIME
     Indication: PYREXIA
     Route: 065
     Dates: start: 20130913, end: 20130918
  16. PARACETAMOL [Concomitant]
     Active Substance: ACETAMINOPHEN
     Indication: PAIN
     Route: 065
     Dates: start: 20130823, end: 20130823

REACTIONS (1)
  - Interstitial lung disease [Recovered/Resolved]

NARRATIVE: CASE EVENT DATE: 20130916
